FAERS Safety Report 5207760-0 (Version None)
Quarter: 2006Q4

REPORT INFORMATION
  Report Type: 
  Country: None (occurrence: None)
  Receive Date: 20061030
  Receipt Date: 20060707
  Transmission Date: 20070319
  Serious: No
  Sender: FDA-Public Use
  Company Number: 252542

PATIENT
  Age: 62 Year
  Sex: Male
  Weight: 203 kg

DRUGS (3)
  1. LEVEMIR [Suspect]
     Indication: INSULIN-REQUIRING TYPE II DIABETES MELLITUS
     Dosage: 55 IU, QD, SUBCUTANEOUS
     Route: 058
     Dates: start: 20060401, end: 20060418
  2. AVANDIA [Concomitant]
  3. LISINOPRIL [Concomitant]

REACTIONS (1)
  - INJECTION SITE ERYTHEMA [None]
